FAERS Safety Report 15132503 (Version 1)
Quarter: 2018Q3

REPORT INFORMATION
  Report Type: Spontaneous
  Country: FR (occurrence: FR)
  Receive Date: 20180712
  Receipt Date: 20180712
  Transmission Date: 20181010
  Serious: Yes (Hospitalization)
  Sender: FDA-Public Use
  Company Number: FR-ROCHE-2153731

PATIENT
  Age: 10 Year
  Sex: Female
  Weight: 34.6 kg

DRUGS (3)
  1. IFOSFAMIDE EG [Suspect]
     Active Substance: IFOSFAMIDE
     Indication: CONJUNCTIVAL NEOPLASM
     Dosage: FORM STRENGTH 40 MG/ML
     Route: 042
     Dates: start: 20180528, end: 20180601
  2. AVASTIN [Suspect]
     Active Substance: BEVACIZUMAB
     Indication: CONJUNCTIVAL NEOPLASM
     Dosage: FORM STRENGTH 25 MG/ML
     Route: 042
     Dates: start: 20180528, end: 20180528
  3. ETOPOSIDE MYLAN [Suspect]
     Active Substance: ETOPOSIDE
     Indication: CONJUNCTIVAL NEOPLASM
     Dosage: FORM STRENGTH 20 MG/ML
     Route: 042
     Dates: start: 20180528, end: 20180601

REACTIONS (2)
  - Mucosal inflammation [Recovered/Resolved]
  - Febrile bone marrow aplasia [Recovered/Resolved]

NARRATIVE: CASE EVENT DATE: 20180607
